FAERS Safety Report 24744621 (Version 1)
Quarter: 2024Q4

REPORT INFORMATION
  Report Type: Spontaneous
  Country: US (occurrence: None)
  Receive Date: 20241216
  Receipt Date: 20241216
  Transmission Date: 20250115
  Serious: No
  Sender: Public
  Company Number: None

PATIENT
  Age: 32 Year
  Sex: Male

DRUGS (1)
  1. BASIC CARE OMEPRAZOLE [Suspect]
     Active Substance: OMEPRAZOLE

REACTIONS (2)
  - Raynaud^s phenomenon [None]
  - Peripheral coldness [None]
